FAERS Safety Report 9086127 (Version 1)
Quarter: 2013Q1

REPORT INFORMATION
  Report Type: Spontaneous
  Country: US (occurrence: US)
  Receive Date: 20130131
  Receipt Date: 20130131
  Transmission Date: 20140127
  Serious: Yes (Other)
  Sender: FDA-Public Use
  Company Number: US-009507513-1301USA014240

PATIENT
  Sex: Female

DRUGS (12)
  1. SINGULAIR [Suspect]
  2. RABEPRAZOLE SODIUM [Concomitant]
  3. LISINOPRIL [Concomitant]
  4. SIMVASTATIN TABLETS, USP [Concomitant]
  5. FLUCONAZOLE [Concomitant]
  6. VARENICLINE TARTRATE [Concomitant]
  7. DULOXETINE HYDROCHLORIDE [Concomitant]
  8. METHOCARBAMOL [Concomitant]
  9. TRAMADOL HYDROCHLORIDE [Concomitant]
  10. GABAPENTIN [Concomitant]
  11. GASTROINTESTINAL PREPARATIONS (UNSPECIFIED) [Concomitant]
  12. METOCLOPRAMIDE [Concomitant]

REACTIONS (1)
  - Suicide attempt [Unknown]
